FAERS Safety Report 19943365 (Version 1)
Quarter: 2021Q4

REPORT INFORMATION
  Report Type: Spontaneous
  Country: US (occurrence: US)
  Receive Date: 20211011
  Receipt Date: 20211011
  Transmission Date: 20220303
  Serious: No
  Sender: FDA-Public Use
  Company Number: US-PFIZER INC-202101128206

PATIENT
  Age: 59 Year
  Sex: Female

DRUGS (1)
  1. XELJANZ [Suspect]
     Active Substance: TOFACITINIB CITRATE
     Indication: Colitis ulcerative
     Dosage: 10 MG, 2X/DAY (TWICE DAILY)
     Route: 048
     Dates: start: 20210803

REACTIONS (8)
  - Urinary tract infection [Unknown]
  - Intentional product misuse [Unknown]
  - Somnolence [Unknown]
  - Diarrhoea [Unknown]
  - Underdose [Unknown]
  - Off label use [Unknown]
  - Product prescribing error [Unknown]
  - Product dose omission issue [Unknown]

NARRATIVE: CASE EVENT DATE: 20210101
